FAERS Safety Report 9355122 (Version 2)
Quarter: 2013Q3

REPORT INFORMATION
  Report Type: Spontaneous
  Country: US (occurrence: US)
  Receive Date: 20130619
  Receipt Date: 20130724
  Transmission Date: 20140515
  Serious: No
  Sender: FDA-Public Use
  Company Number: US-009507513-1306USA007545

PATIENT
  Age: 27 Year
  Sex: Female
  Weight: 104.31 kg

DRUGS (1)
  1. NEXPLANON [Suspect]
     Indication: CONTRACEPTION
     Dosage: 68 MG, ROD, EVERY THREE YEARS
     Route: 059
     Dates: start: 20130614

REACTIONS (2)
  - Device expulsion [Unknown]
  - No adverse event [Unknown]
